FAERS Safety Report 8036542-X (Version None)
Quarter: 2012Q1

REPORT INFORMATION
  Report Type: 
  Country: None (occurrence: None)
  Receive Date: 20120111
  Receipt Date: 20120105
  Transmission Date: 20120608
  Serious: Yes (Hospitalization, Other)
  Sender: FDA-Public Use
  Company Number: FR-PFIZER INC-2011304328

PATIENT
  Age: 68 Year
  Sex: Male

DRUGS (2)
  1. LYRICA [Suspect]
     Indication: NEURALGIA
     Dosage: 150 MG, 3X/DAY
     Dates: end: 20111012
  2. SPIRIVA [Concomitant]
     Dosage: UNK

REACTIONS (8)
  - RENAL FAILURE ACUTE [None]
  - HYPOGLYCAEMIA [None]
  - ESCHAR [None]
  - HYPOTENSION [None]
  - URINARY RETENTION [None]
  - SEPSIS [None]
  - URINARY TRACT INFECTION [None]
  - ESCHERICHIA INFECTION [None]
